FAERS Safety Report 9122580 (Version 1)
Quarter: 2013Q1

REPORT INFORMATION
  Report Type: Spontaneous
  Country: US (occurrence: None)
  Receive Date: 20130222
  Receipt Date: 20130222
  Transmission Date: 20140127
  Serious: Yes (Life-Threatening, Hospitalization)
  Sender: FDA-Public Use
  Company Number: 2013US-004584

PATIENT
  Age: 53 Year
  Sex: Male
  Weight: 92.5 kg

DRUGS (16)
  1. OMONTYS (PEGINESATIDE) SOLUTION FOR INJECTION [Suspect]
     Indication: NEPHROGENIC ANAEMIA
     Dosage: 10 MG, Q 4 WEEKS, INTRAVENOUS
     Route: 042
     Dates: start: 20130212, end: 20130212
  2. ZOSYN (PIPERACILLIN SODIUM, TAZOBACTAM SODIUM) [Concomitant]
  3. TYLENOL (PARACETAMOL) [Concomitant]
  4. NORVASC (AMLODIPINE BESILATE) [Concomitant]
  5. ARANESP (DARBEPOETIN ALFA) [Concomitant]
  6. LEXAPRO (ESCITALOPRAM OXALATE) [Concomitant]
  7. NOVOLOG (INSULIN ASPART) [Concomitant]
  8. LISPRO INSULIN (INSULIN LISPRO) [Concomitant]
  9. LABETALOL (LABETALOL) [Concomitant]
  10. HYDROCODONE (HYDROCODONE) [Concomitant]
  11. METHADONE (METHADONE) [Concomitant]
  12. FOSRENOL (LANTHANUM CARBONATE) [Concomitant]
  13. PHOSLO (CALCIUM ACETATE) [Concomitant]
  14. ZEMPLAR (PARICALCITOL) [Concomitant]
  15. HEPARIN (HEPARIN) [Concomitant]
  16. EPOGEN (EPOETIN ALFA) [Concomitant]

REACTIONS (5)
  - Anaphylactic reaction [None]
  - Burning sensation [None]
  - Dyspnoea [None]
  - Cyanosis [None]
  - Unresponsive to stimuli [None]
